FAERS Safety Report 15093591 (Version 2)
Quarter: 2018Q3

REPORT INFORMATION
  Report Type: Spontaneous
  Country: US (occurrence: US)
  Receive Date: 20180629
  Receipt Date: 20180706
  Transmission Date: 20181010
  Serious: No
  Sender: FDA-Public Use
  Company Number: US-IPSEN BIOPHARMACEUTICALS, INC.-2018-06761

PATIENT
  Age: 69 Year
  Sex: Female

DRUGS (4)
  1. DYSPORT [Suspect]
     Active Substance: ABOBOTULINUMTOXINA
     Indication: SKIN COSMETIC PROCEDURE
     Dosage: NOT REPORTED
     Route: 065
  2. RESTYLANE WITH LIDOCAINE [Suspect]
     Active Substance: HYALURONIC ACID\LIDOCAINE
     Indication: SKIN COSMETIC PROCEDURE
     Dosage: EYE AREA 1CC, CHEEKS 1.5CC/BOTH
     Dates: start: 20180102, end: 20180102
  3. RESTYLANE WITH LIDOCAINE [Suspect]
     Active Substance: HYALURONIC ACID\LIDOCAINE
     Dosage: EYE AREA 1CC, CHEEKS 1.5CC/BOTH
     Dates: start: 20171217, end: 20171217
  4. RESTYLANE WITH LIDOCAINE [Suspect]
     Active Substance: HYALURONIC ACID\LIDOCAINE
     Dates: start: 20171226, end: 20171226

REACTIONS (4)
  - Injection site indentation [Not Recovered/Not Resolved]
  - Feeling abnormal [Not Recovered/Not Resolved]
  - Eye swelling [Recovering/Resolving]
  - Facial asymmetry [Not Recovered/Not Resolved]

NARRATIVE: CASE EVENT DATE: 20180102
